FAERS Safety Report 10098128 (Version 1)
Quarter: 2014Q2

REPORT INFORMATION
  Report Type: Spontaneous
  Country: GB (occurrence: None)
  Receive Date: 20140421
  Receipt Date: 20140421
  Transmission Date: 20141212
  Serious: Yes (Disabling)
  Sender: FDA-Public Use
  Company Number: AUR-APL-2014-04570

PATIENT
  Age: 73 Year
  Sex: Female
  Weight: 71.1 kg

DRUGS (10)
  1. LISINOPRIL (LISINOPRIL) [Suspect]
     Indication: PRODUCT USED FOR UNKNOWN INDICATION
     Dates: start: 20131125
  2. BUDESONIDE (BUDESONIDE) [Concomitant]
  3. CERUMOL (CERUMOL /00085001/) [Concomitant]
  4. CO-CODAMOL (PANADEINE CO) [Concomitant]
  5. DICLOFENAC SODIUM (DICLOFENAC SODIUM) [Concomitant]
  6. ERYTHROMYCIN (ERYTHROMYCIN) [Concomitant]
  7. GAVISCON ADVANCE (GAVISCON ADVANCE) [Concomitant]
  8. HYPROMELLOSE HYPROMELLOSE) [Concomitant]
  9. MOMETASONE (MOMETASONE) [Concomitant]
  10. SIMVASTATIN (SIMVASTATIN) [Concomitant]

REACTIONS (1)
  - Dermatitis allergic [None]
